FAERS Safety Report 19973679 (Version 2)
Quarter: 2021Q4

REPORT INFORMATION
  Report Type: Report from Study
  Country: RU (occurrence: RU)
  Receive Date: 20211020
  Receipt Date: 20211213
  Transmission Date: 20220303
  Serious: Yes (Hospitalization)
  Sender: FDA-Public Use
  Company Number: RU-CELGENE-RUS-20210808276

PATIENT
  Age: 29 Year
  Sex: Male
  Weight: 84.3 kg

DRUGS (18)
  1. OZANIMOD [Suspect]
     Active Substance: OZANIMOD
     Indication: Colitis ulcerative
     Route: 048
     Dates: start: 201605
  2. SULFASALAZINE [Concomitant]
     Active Substance: SULFASALAZINE
     Indication: Colitis ulcerative
     Dosage: 3000 MILLIGRAM
     Route: 048
     Dates: start: 201602
  3. POLYETHYLENE GLYCOL 4000\POTASSIUM CHLORIDE\SODIUM BICARBONATE\SODIUM [Concomitant]
     Active Substance: POLYETHYLENE GLYCOL 4000\POTASSIUM CHLORIDE\SODIUM BICARBONATE\SODIUM CHLORIDE\SODIUM SULFATE
     Indication: Sigmoidoscopy
     Dosage: 3000 MILLILITER
     Route: 048
     Dates: start: 20170827, end: 20170827
  4. POLYETHYLENE GLYCOL 4000\POTASSIUM CHLORIDE\SODIUM BICARBONATE\SODIUM [Concomitant]
     Active Substance: POLYETHYLENE GLYCOL 4000\POTASSIUM CHLORIDE\SODIUM BICARBONATE\SODIUM CHLORIDE\SODIUM SULFATE
     Dosage: 3000 MILLILITER
     Route: 048
     Dates: start: 20161004, end: 20161004
  5. POLYETHYLENE GLYCOL 4000\POTASSIUM CHLORIDE\SODIUM BICARBONATE\SODIUM [Concomitant]
     Active Substance: POLYETHYLENE GLYCOL 4000\POTASSIUM CHLORIDE\SODIUM BICARBONATE\SODIUM CHLORIDE\SODIUM SULFATE
     Dosage: 3000 MILLILITER
     Route: 048
     Dates: start: 20180729, end: 20180729
  6. POLYETHYLENE GLYCOL 4000\POTASSIUM CHLORIDE\SODIUM BICARBONATE\SODIUM [Concomitant]
     Active Substance: POLYETHYLENE GLYCOL 4000\POTASSIUM CHLORIDE\SODIUM BICARBONATE\SODIUM CHLORIDE\SODIUM SULFATE
     Dosage: 3000 MILLILITER
     Route: 048
     Dates: start: 20190626, end: 20190626
  7. POLYETHYLENE GLYCOL 4000\POTASSIUM CHLORIDE\SODIUM BICARBONATE\SODIUM [Concomitant]
     Active Substance: POLYETHYLENE GLYCOL 4000\POTASSIUM CHLORIDE\SODIUM BICARBONATE\SODIUM CHLORIDE\SODIUM SULFATE
     Dosage: 3000 MILLILITER
     Route: 048
     Dates: start: 20200531, end: 20200531
  8. POLYETHYLENE GLYCOL 4000\POTASSIUM CHLORIDE\SODIUM BICARBONATE\SODIUM [Concomitant]
     Active Substance: POLYETHYLENE GLYCOL 4000\POTASSIUM CHLORIDE\SODIUM BICARBONATE\SODIUM CHLORIDE\SODIUM SULFATE
     Dosage: 30000 MILLILITER
     Route: 048
     Dates: start: 20210428, end: 20210428
  9. FAVIPIRAVIR [Concomitant]
     Active Substance: FAVIPIRAVIR
     Indication: Coronavirus infection
     Dosage: 3600 MILLIGRAM
     Route: 048
     Dates: start: 20210805, end: 20210805
  10. FAVIPIRAVIR [Concomitant]
     Active Substance: FAVIPIRAVIR
     Dosage: 1600 MILLIGRAM
     Route: 048
     Dates: start: 20210806, end: 20210814
  11. ENOXAPARIN SODIUM [Concomitant]
     Active Substance: ENOXAPARIN SODIUM
     Indication: Coronavirus infection
     Dosage: 40 MG
     Route: 058
     Dates: start: 20210805, end: 20210811
  12. DEXAMETHASONE [Concomitant]
     Active Substance: DEXAMETHASONE
     Indication: Coronavirus infection
     Dosage: 8 MG
     Route: 041
     Dates: start: 20210805, end: 20210807
  13. DEXAMETHASONE [Concomitant]
     Active Substance: DEXAMETHASONE
     Dosage: 4 MG
     Route: 041
     Dates: start: 20190808, end: 20190809
  14. AMIKACIN [Concomitant]
     Active Substance: AMIKACIN
     Indication: Coronavirus infection
     Route: 030
     Dates: start: 20210812, end: 20210818
  15. CIPROFLOXACIN [Concomitant]
     Active Substance: CIPROFLOXACIN
     Indication: Coronavirus infection
     Dosage: 400 MILLIGRAM
     Route: 041
     Dates: start: 20210805, end: 20210811
  16. AMBROXOL [Concomitant]
     Active Substance: AMBROXOL
     Indication: Coronavirus infection
     Route: 048
     Dates: start: 20210805, end: 20210818
  17. FLUCONAZOLE [Concomitant]
     Active Substance: FLUCONAZOLE
     Indication: Coronavirus infection
     Dosage: 150 MG
     Route: 048
     Dates: start: 20210817, end: 20210817
  18. ACETAMINOPHEN [Concomitant]
     Active Substance: ACETAMINOPHEN
     Indication: Hyperthermia
     Dosage: 1000 MILLIGRAM
     Route: 048
     Dates: start: 20210803, end: 20210804

REACTIONS (2)
  - Pneumonia [Recovered/Resolved]
  - COVID-19 [Recovered/Resolved]

NARRATIVE: CASE EVENT DATE: 20210803
